FAERS Safety Report 5771296-9 (Version None)
Quarter: 2008Q2

REPORT INFORMATION
  Report Type: 
  Country: None (occurrence: None)
  Receive Date: 20080430
  Receipt Date: 20080430
  Transmission Date: 20081010
  Serious: No
  Sender: FDA-Public Use
  Company Number: None

PATIENT
  Age: 60 Year
  Sex: Female
  Weight: 77.1115 kg

DRUGS (1)
  1. NITROUS OXIDE IN THE AMBIENT AIR [Suspect]

REACTIONS (2)
  - DEVICE LEAKAGE [None]
  - IMPAIRED WORK ABILITY [None]
